FAERS Safety Report 26043427 (Version 1)
Quarter: 2025Q4

REPORT INFORMATION
  Report Type: Spontaneous
  Country: US (occurrence: US)
  Receive Date: 20251113
  Receipt Date: 20251113
  Transmission Date: 20260117
  Serious: No
  Sender: SANDOZ
  Company Number: US-SANDOZ-SDZ2025US083428

PATIENT
  Sex: Female

DRUGS (2)
  1. RECLAST [Suspect]
     Active Substance: ZOLEDRONIC ACID
     Indication: Product used for unknown indication
     Dosage: 5MG/100ML, 1 PER YEAR
     Route: 065
     Dates: start: 20250817
  2. TYLENOL [Concomitant]
     Active Substance: ACETAMINOPHEN
     Indication: Hypersensitivity
     Route: 065

REACTIONS (7)
  - Pain in extremity [Unknown]
  - Pain in extremity [Unknown]
  - Influenza [Unknown]
  - Back pain [Unknown]
  - Pyrexia [Unknown]
  - Headache [Unknown]
  - Arthralgia [Unknown]

NARRATIVE: CASE EVENT DATE: 20250821
